FAERS Safety Report 14929508 (Version 2)
Quarter: 2018Q3

REPORT INFORMATION
  Report Type: Spontaneous
  Country: US (occurrence: US)
  Receive Date: 20180523
  Receipt Date: 20180815
  Transmission Date: 20181010
  Serious: No
  Sender: FDA-Public Use
  Company Number: US-TEIKOKU PHARMA USA-TPU2018-00290

PATIENT
  Sex: Male
  Weight: 112.59 kg

DRUGS (1)
  1. LIDODERM [Suspect]
     Active Substance: LIDOCAINE
     Indication: NECK PAIN
     Route: 061
     Dates: start: 20180424

REACTIONS (1)
  - Drug ineffective for unapproved indication [Unknown]
